FAERS Safety Report 4917883-9 (Version None)
Quarter: 2006Q1

REPORT INFORMATION
  Report Type: 
  Country: None (occurrence: None)
  Receive Date: 20060215
  Receipt Date: 20060206
  Transmission Date: 20060701
  Serious: Yes (Other)
  Sender: FDA-Public Use
  Company Number: 2006011761

PATIENT
  Age: 70 Year
  Sex: Female

DRUGS (1)
  1. CARDENALIN (DOXAZOSIN) [Suspect]
     Indication: ILL-DEFINED DISORDER
     Dosage: 2 MG, ORAL
     Route: 048

REACTIONS (2)
  - DEAFNESS [None]
  - HEARING IMPAIRED [None]
